FAERS Safety Report 25499359 (Version 1)
Quarter: 2025Q3

REPORT INFORMATION
  Report Type: Spontaneous
  Country: EU (occurrence: EU)
  Receive Date: 20250701
  Receipt Date: 20250701
  Transmission Date: 20251020
  Serious: Yes (Hospitalization, Other)
  Sender: PFIZER
  Company Number: EU-DCGMA-25205308

PATIENT
  Age: 12 Year
  Sex: Female
  Weight: 38 kg

DRUGS (12)
  1. AZITHROMYCIN [Suspect]
     Active Substance: AZITHROMYCIN
     Route: 048
     Dates: start: 202405, end: 20240716
  2. TACROLIMUS [Suspect]
     Active Substance: TACROLIMUS
     Indication: Renal transplant
     Dosage: 1 DF, 2X/DAY (1-0-1)
     Route: 048
     Dates: start: 202401
  3. EVEROLIMUS [Suspect]
     Active Substance: EVEROLIMUS
     Indication: Renal transplant
     Dosage: 1 DF, 2X/DAY (1-0-1)
     Route: 048
     Dates: start: 202401
  4. SODIUM BICARBONATE [Concomitant]
     Active Substance: SODIUM BICARBONATE
     Indication: Chronic kidney disease
     Dosage: 2 DF, 2X/DAY (2-0-2)
     Route: 048
     Dates: start: 202401
  5. CHOLECALCIFEROL [Concomitant]
     Active Substance: CHOLECALCIFEROL
     Route: 048
     Dates: start: 202404
  6. TROSPIUM CHLORIDE [Concomitant]
     Active Substance: TROSPIUM CHLORIDE
     Route: 048
     Dates: start: 202404
  7. FERRO-SANOL DUODENAL [Concomitant]
     Active Substance: FERROUS GLYCINE SULFATE
     Route: 048
     Dates: start: 202404
  8. MAGNESIUM VERLA [MAGNESIUM GLUTAMATE] [Concomitant]
     Dosage: UNK, 3X/DAY (40 MG 2-1-1)
     Route: 048
     Dates: start: 202404
  9. LEVOTHYROXINE SODIUM [Concomitant]
     Active Substance: LEVOTHYROXINE SODIUM
     Route: 048
     Dates: start: 202404
  10. TRIMETHOPRIM [Concomitant]
     Active Substance: TRIMETHOPRIM
     Route: 048
     Dates: start: 202404
  11. SULFAMETHOXAZOLE\TRIMETHOPRIM [Concomitant]
     Active Substance: SULFAMETHOXAZOLE\TRIMETHOPRIM
     Route: 048
     Dates: start: 202404
  12. PREDNISOLONE [Concomitant]
     Active Substance: PREDNISOLONE
     Route: 048
     Dates: start: 202404, end: 20240716

REACTIONS (4)
  - Agranulocytosis [Recovering/Resolving]
  - Swelling face [Recovering/Resolving]
  - Odynophagia [Recovering/Resolving]
  - Pyrexia [Recovering/Resolving]

NARRATIVE: CASE EVENT DATE: 20240716
